FAERS Safety Report 5368197-7 (Version None)
Quarter: 2007Q2

REPORT INFORMATION
  Report Type: 
  Country: None (occurrence: None)
  Receive Date: 20070625
  Receipt Date: 20070615
  Transmission Date: 20071010
  Serious: Yes (Other)
  Sender: FDA-Public Use
  Company Number: PHBS2007JP10291

PATIENT
  Age: 78 Year
  Sex: Male

DRUGS (4)
  1. ZOMETA [Suspect]
     Indication: MULTIPLE MYELOMA
     Dosage: 4 MG, UNK
     Route: 042
     Dates: start: 20060601, end: 20070601
  2. AREDIA [Suspect]
     Indication: MULTIPLE MYELOMA
     Dosage: 30 MG
     Route: 042
     Dates: start: 20050811, end: 20060501
  3. MELPHALAN [Concomitant]
     Dates: start: 20030101
  4. PREDNISOLONE [Concomitant]
     Dates: start: 20030101

REACTIONS (4)
  - BONE DISORDER [None]
  - OSTEOMYELITIS [None]
  - OSTEONECROSIS [None]
  - PRIMARY SEQUESTRUM [None]
